FAERS Safety Report 16824202 (Version 1)
Quarter: 2019Q3

REPORT INFORMATION
  Report Type: Spontaneous
  Country: GB (occurrence: GB)
  Receive Date: 20190918
  Receipt Date: 20190918
  Transmission Date: 20191005
  Serious: Yes (Other)
  Sender: FDA-Public Use
  Company Number: GB-JNJFOC-20190917871

PATIENT
  Age: 73 Year
  Sex: Male
  Weight: 83 kg

DRUGS (23)
  1. LIQUIFILM TEARS [Concomitant]
     Active Substance: POLYVINYL ALCOHOL
     Dosage: ONE DROP INTO BOTH EYES
     Route: 047
     Dates: start: 20180904, end: 20190529
  2. CHOLINE SALICYLATE [Concomitant]
     Active Substance: CHOLINE SALICYLATE
     Dosage: USE AS DIRECTED
     Route: 065
     Dates: start: 20180904, end: 20190529
  3. GAVISCON ADVANCE [Concomitant]
     Active Substance: POTASSIUM BICARBONATE\SODIUM ALGINATE
     Dosage: 5ML OR 10ML 4 TIMES/DAY; AS REQUIRED
     Route: 065
     Dates: start: 20180904
  4. DUROGESIC D-TRANS [Concomitant]
     Active Substance: FENTANYL
     Dates: start: 20180910
  5. APIXABAN [Concomitant]
     Active Substance: APIXABAN
     Route: 065
     Dates: start: 20190517, end: 20190819
  6. MOVICOL [Concomitant]
     Active Substance: POLYETHYLENE GLYCOL 3350\POTASSIUM CHLORIDE\SODIUM BICARBONATE\SODIUM CHLORIDE
     Dosage: TAKE ON 2-3 TIMES A DAY; AS REQUIRED
     Route: 065
     Dates: start: 20180904
  7. TOCILIZUMAB. [Concomitant]
     Active Substance: TOCILIZUMAB
     Route: 065
     Dates: start: 20190731
  8. MST CONTINUS [Concomitant]
     Active Substance: MORPHINE SULFATE
     Route: 065
     Dates: start: 20190730, end: 20190731
  9. ONDANSETRON [Concomitant]
     Active Substance: ONDANSETRON
     Dosage: THREE TIMES A DAY; AS REQUIRED
     Route: 065
     Dates: start: 20180904
  10. SPIRONOLACTONE. [Concomitant]
     Active Substance: SPIRONOLACTONE
     Route: 065
     Dates: start: 20180904
  11. GLYCEROL [Concomitant]
     Active Substance: GLYCERIN
     Dosage: INSERT; AS REQUIRED
     Dates: start: 20180904, end: 20190529
  12. CHLORHEXIDINE GLUCONATE. [Concomitant]
     Active Substance: CHLORHEXIDINE GLUCONATE
     Dosage: USE TWICE DAILY. MAXIMUM 5 TIMES DAILY; AS REQUIRED
     Route: 065
     Dates: start: 20180904, end: 20190529
  13. CANDESARTAN. [Concomitant]
     Active Substance: CANDESARTAN
     Dosage: NIGHT
     Route: 065
     Dates: start: 20190517, end: 20190819
  14. LACRI-LUBE [Concomitant]
     Dosage: APPLY 1CM INTO BOTH EYES
     Route: 047
     Dates: start: 20180904, end: 20190529
  15. FUROSEMIDE. [Concomitant]
     Active Substance: FUROSEMIDE
     Dosage: EACH MORNING
     Route: 065
     Dates: start: 20180904
  16. IBUPROFEN. [Concomitant]
     Active Substance: IBUPROFEN
     Dosage: THREE TIMES A DAY; AS REQUIRED
     Route: 065
     Dates: start: 20190529
  17. PARACETAMOL [Concomitant]
     Active Substance: ACETAMINOPHEN
     Route: 065
     Dates: start: 20180904
  18. INFLIXIMAB, RECOMBINANT [Suspect]
     Active Substance: INFLIXIMAB
     Indication: PRODUCT USED FOR UNKNOWN INDICATION
     Route: 042
     Dates: start: 20190801
  19. GLYCERYL TRINITRATE [Concomitant]
     Active Substance: NITROGLYCERIN
     Dosage: ; AS REQUIRED
     Dates: start: 20190517
  20. SALBUTAMOL [Concomitant]
     Active Substance: ALBUTEROL
     Dosage: ; AS REQUIRED
     Route: 055
     Dates: start: 20190116
  21. CODEINE PHOSPHATE [Concomitant]
     Active Substance: CODEINE PHOSPHATE
     Dosage: TAKE 1 OR 2  UP 4 TIMES/DAY; AS REQUIRED
     Route: 065
     Dates: start: 20190715, end: 20190725
  22. DIAZEPAM. [Concomitant]
     Active Substance: DIAZEPAM
     Dosage: NIGHT
     Route: 065
     Dates: start: 20180904
  23. LANSOPRAZOLE. [Concomitant]
     Active Substance: LANSOPRAZOLE
     Route: 065
     Dates: start: 20190314

REACTIONS (1)
  - Hypersensitivity [Recovered/Resolved]

NARRATIVE: CASE EVENT DATE: 20190801
